FAERS Safety Report 9491630 (Version 1)
Quarter: 2013Q3

REPORT INFORMATION
  Report Type: Spontaneous
  Country: GB (occurrence: GB)
  Receive Date: 20130830
  Receipt Date: 20130830
  Transmission Date: 20140515
  Serious: Yes (Other)
  Sender: FDA-Public Use
  Company Number: GB-NOVOPROD-385765

PATIENT
  Sex: Female

DRUGS (4)
  1. NOVORAPID [Suspect]
     Indication: DIABETES MELLITUS
     Dosage: UNKNOWN
     Route: 058
     Dates: start: 200708, end: 201303
  2. EXENATIDE [Suspect]
     Indication: DIABETES MELLITUS
     Dosage: 5 MCG, UNK
     Route: 058
     Dates: start: 201201, end: 201303
  3. LANTUS [Suspect]
     Indication: DIABETES MELLITUS
     Dosage: 20 IU, QD
     Route: 058
     Dates: start: 200801
  4. LANTUS [Suspect]
     Dosage: 20 IU, QD
     Route: 058

REACTIONS (3)
  - Seizure like phenomena [Unknown]
  - Loss of consciousness [Not Recovered/Not Resolved]
  - Palpitations [Unknown]
